FAERS Safety Report 10031450 (Version 1)
Quarter: 2014Q1

REPORT INFORMATION
  Report Type: Report from Study
  Country: GB (occurrence: GB)
  Receive Date: 20140324
  Receipt Date: 20140324
  Transmission Date: 20141002
  Serious: Yes (Other)
  Sender: FDA-Public Use
  Company Number: GB-ROCHE-1364314

PATIENT
  Age: 52 Year
  Sex: Male

DRUGS (8)
  1. CAPECITABINE [Suspect]
     Indication: COLORECTAL CANCER METASTATIC
     Route: 065
  2. AVASTIN [Suspect]
     Indication: COLORECTAL CANCER METASTATIC
     Dosage: EVERY 3 WEEKS, 12 CYCLES TOTAL, THEN MAINTENANCE
     Route: 065
  3. FOLINIC ACID [Concomitant]
     Indication: COLORECTAL CANCER METASTATIC
     Dosage: 12 CYCLES
     Route: 065
  4. FLUOROURACIL [Concomitant]
     Indication: COLORECTAL CANCER METASTATIC
     Dosage: 13 CYCLES
     Route: 065
  5. IRINOTECAN [Concomitant]
     Indication: COLORECTAL CANCER METASTATIC
     Dosage: 12 CYCLES
     Route: 065
  6. OXALIPLATIN [Concomitant]
     Dosage: 13 CYCLES, DOSE REDUCED TO 60%
     Route: 065
  7. CETUXIMAB [Concomitant]
     Dosage: 2 CYCLES
     Route: 065
  8. LEUCOVORIN [Concomitant]
     Dosage: 13 CYCLES
     Route: 065

REACTIONS (5)
  - Skin toxicity [Unknown]
  - Nerve injury [Unknown]
  - Thrombosis in device [Recovered/Resolved]
  - Proteinuria [Unknown]
  - Diarrhoea [Unknown]
